FAERS Safety Report 11701873 (Version 2)
Quarter: 2015Q4

REPORT INFORMATION
  Report Type: Spontaneous
  Country: US (occurrence: US)
  Receive Date: 20151105
  Receipt Date: 20151125
  Transmission Date: 20160304
  Serious: Yes (Other)
  Sender: FDA-Public Use
  Company Number: US-AKORN PHARMACEUTICALS-2015AKN00602

PATIENT
  Age: 20 Year
  Sex: Female
  Weight: 56.69 kg

DRUGS (2)
  1. TRI-LINYAH [Concomitant]
     Active Substance: ETHINYL ESTRADIOL\NORGESTIMATE
  2. MYORISAN [Suspect]
     Active Substance: ISOTRETINOIN
     Indication: ACNE
     Dosage: 20 MG, 2X/DAY
     Route: 048
     Dates: start: 20150915, end: 20151019

REACTIONS (2)
  - Anxiety [Unknown]
  - Condition aggravated [None]

NARRATIVE: CASE EVENT DATE: 20151019
